FAERS Safety Report 4509165-4 (Version None)
Quarter: 2004Q4

REPORT INFORMATION
  Report Type: 
  Country: None (occurrence: None)
  Receive Date: 20041025
  Receipt Date: 20040218
  Transmission Date: 20050328
  Serious: Yes (Hospitalization, Other)
  Sender: FDA-Public Use
  Company Number: NSADSS2002028124

PATIENT
  Age: 77 Year
  Sex: Female
  Weight: 58.9676 kg

DRUGS (10)
  1. REMICADE [Suspect]
     Indication: RHEUMATOID ARTHRITIS
     Dosage: 300 MG, INTRAVENOUS DRIP
     Route: 041
     Dates: start: 20020530
  2. REMICADE [Suspect]
  3. IMURAN [Concomitant]
  4. CELEBREX [Concomitant]
  5. PREDNISONE [Concomitant]
  6. PRILOSEC [Concomitant]
  7. LASIX [Concomitant]
  8. AMITRIPTYLINE HCL [Concomitant]
  9. SERAX [Concomitant]
  10. SINGULAIR [Concomitant]

REACTIONS (2)
  - STAPHYLOCOCCAL SEPSIS [None]
  - URINARY TRACT INFECTION [None]
